FAERS Safety Report 13108070 (Version 11)
Quarter: 2019Q3

REPORT INFORMATION
  Report Type: Spontaneous
  Country: US (occurrence: US)
  Receive Date: 20170112
  Receipt Date: 20190923
  Transmission Date: 20191004
  Serious: No
  Sender: FDA-Public Use
  Company Number: US-PFIZER INC-2016521745

PATIENT
  Age: 10 Year
  Sex: Male
  Weight: 39 kg

DRUGS (16)
  1. GENOTROPIN [Suspect]
     Active Substance: SOMATROPIN
     Dosage: 2.7 MG, UNK
     Dates: start: 201609
  2. GENOTROPIN [Suspect]
     Active Substance: SOMATROPIN
     Dosage: 2.8 MG, DAILY
     Dates: start: 2016
  3. GENOTROPIN [Suspect]
     Active Substance: SOMATROPIN
     Dosage: 2.6 MG, ALTERNATE DAY
     Dates: end: 20190211
  4. GENOTROPIN [Suspect]
     Active Substance: SOMATROPIN
     Dosage: UNK
  5. NAPROXEN. [Concomitant]
     Active Substance: NAPROXEN
     Indication: MIGRAINE
     Dosage: 500 MG, AS NEEDED
     Route: 048
     Dates: start: 2017
  6. GENOTROPIN [Suspect]
     Active Substance: SOMATROPIN
     Dosage: 2.6 MG, ALTERNATE DAY
     Route: 058
     Dates: end: 20181118
  7. GENOTROPIN [Suspect]
     Active Substance: SOMATROPIN
     Dosage: 2.6 MG(4 DAYS A WEEK)
     Dates: start: 20161130
  8. GENOTROPIN [Suspect]
     Active Substance: SOMATROPIN
     Indication: GROWTH HORMONE DEFICIENCY
     Dosage: 1.9 MG, DAILY
     Route: 058
     Dates: start: 2014, end: 2016
  9. GENOTROPIN [Suspect]
     Active Substance: SOMATROPIN
     Dosage: 2.4 MG, ALTERNATE DAY
     Route: 058
  10. GENOTROPIN [Suspect]
     Active Substance: SOMATROPIN
     Dosage: 2.8 MG, ALTERNATE DAY
     Route: 058
     Dates: end: 20181118
  11. GENOTROPIN [Suspect]
     Active Substance: SOMATROPIN
     Dosage: 2.6 MG, ALTERNATE DAY
     Dates: start: 2016
  12. GENOTROPIN [Suspect]
     Active Substance: SOMATROPIN
     Dosage: 2.5 MG, ALTERNATE DAY
     Route: 058
  13. GENOTROPIN [Suspect]
     Active Substance: SOMATROPIN
     Dosage: 2.8 MG, ALTERNATE DAY
     Dates: end: 20190211
  14. GENOTROPIN [Suspect]
     Active Substance: SOMATROPIN
     Dosage: 2.7 MG, DAILY
     Dates: start: 20161130
  15. GENOTROPIN [Suspect]
     Active Substance: SOMATROPIN
     Dosage: 2.8 MG(3 DAYS A WEEK)
     Dates: start: 20161130
  16. GENOTROPIN [Suspect]
     Active Substance: SOMATROPIN
     Dosage: UNK
     Route: 058
     Dates: start: 20161212, end: 20170106

REACTIONS (6)
  - Wrong technique in device usage process [Unknown]
  - Device breakage [Unknown]
  - Headache [Recovering/Resolving]
  - Device issue [Unknown]
  - Product dose omission [Unknown]
  - Product prescribing error [Unknown]

NARRATIVE: CASE EVENT DATE: 20161130
